FAERS Safety Report 8887655 (Version 1)
Quarter: 2012Q4

REPORT INFORMATION
  Report Type: Spontaneous
  Country: US (occurrence: None)
  Receive Date: 20121101
  Receipt Date: 20121101
  Transmission Date: 20130627
  Serious: Yes (Death)
  Sender: FDA-Public Use
  Company Number: None

PATIENT
  Age: 86 Year
  Sex: Male
  Weight: 80 kg

DRUGS (1)
  1. PRADAXA [Suspect]
     Indication: CHRONIC ATRIAL FIBRILLATION
     Route: 048

REACTIONS (5)
  - Fall [None]
  - Haemorrhage intracranial [None]
  - Facial bones fracture [None]
  - Haemodialysis [None]
  - Intra-abdominal haematoma [None]
